FAERS Safety Report 9258159 (Version 2)
Quarter: 2013Q2

REPORT INFORMATION
  Report Type: Report from Study
  Country: US (occurrence: US)
  Receive Date: 20130426
  Receipt Date: 20130514
  Transmission Date: 20140414
  Serious: No
  Sender: FDA-Public Use
  Company Number: US-VERTEX PHARMACEUTICALS INC.-2013-005423

PATIENT
  Age: 43 Year
  Sex: Female

DRUGS (9)
  1. VX-950 (TELAPREVIR) [Suspect]
     Indication: HEPATITIS C
     Dosage: UNK
     Route: 048
     Dates: start: 20130215, end: 20130303
  2. RIBAVIRIN [Suspect]
     Indication: HEPATITIS C
     Dosage: 1200 MG, QD
     Dates: start: 20130215, end: 20130303
  3. PEGASYS [Suspect]
     Indication: HEPATITIS C
     Dosage: UNK
     Dates: start: 20130215, end: 20130303
  4. VITAMIN D /00107901/ [Concomitant]
     Dosage: 4000 UT, PRN
  5. TRIAMCINOLONE ACETONIDE [Concomitant]
     Dosage: 0.1 %, BID
  6. LEXAPRO [Concomitant]
     Dosage: 20 MG, QD
  7. TYLENOL                            /00020001/ [Concomitant]
     Dosage: 650 MG, PRN
  8. LIVER DTX [Concomitant]
  9. SHAKLEE NUTRUFERON [Concomitant]

REACTIONS (4)
  - White blood cell count decreased [Recovered/Resolved]
  - Diarrhoea haemorrhagic [Recovered/Resolved]
  - Fatigue [Recovered/Resolved]
  - Anaemia [Recovered/Resolved]
